FAERS Safety Report 8834806 (Version 1)
Quarter: 2012Q4

REPORT INFORMATION
  Report Type: Spontaneous
  Country: GB (occurrence: None)
  Receive Date: 20121009
  Receipt Date: 20121009
  Transmission Date: 20130627
  Serious: Yes (Disabling, Other)
  Sender: FDA-Public Use
  Company Number: AUR-APL-2012-04244

PATIENT
  Age: 40 Year
  Sex: Female
  Weight: 100.6 kg

DRUGS (6)
  1. AMOXICILLIN AND CLAVULANIC ACID [Suspect]
     Indication: WOUND INFECTION
     Dosage: 4 dosage forms (1 dosage forms, 4 in 1 D), Oral
     Route: 048
     Dates: start: 20120815, end: 20120822
  2. AMITRIPTYLINE [Concomitant]
  3. BETAHISTINE [Concomitant]
  4. DULOXETINE [Concomitant]
  5. METFORMIN [Concomitant]
  6. OMEPRAZOLE [Concomitant]

REACTIONS (3)
  - Rash macular [None]
  - Mouth ulceration [None]
  - Vaginal ulceration [None]
